FAERS Safety Report 8154947-3 (Version None)
Quarter: 2012Q1

REPORT INFORMATION
  Report Type: 
  Country: None (occurrence: None)
  Receive Date: 20120221
  Receipt Date: 20120216
  Transmission Date: 20120608
  Serious: Yes (Life-Threatening, Hospitalization)
  Sender: FDA-Public Use
  Company Number: PHHY2012FR014208

PATIENT
  Sex: Male

DRUGS (12)
  1. VITAMIN D [Concomitant]
     Indication: VITAMIN D DEFICIENCY
     Dosage: 100000 IU, UNK
  2. PROZAC [Concomitant]
     Indication: DEPRESSION
     Dosage: 20 MG, AT 1DF DAILY
  3. TACROLIMUS [Concomitant]
     Dosage: 4 MG, UNK
  4. MYCOPHENOLATE MOFETIL (CELLCEPT) [Concomitant]
     Indication: PROPHYLAXIS AGAINST TRANSPLANT REJECTION
     Dosage: 500 MG, @DF DAILY
     Route: 048
  5. CERTICAN [Suspect]
     Indication: PROPHYLAXIS AGAINST TRANSPLANT REJECTION
     Dosage: UNK UKN, UNK
     Route: 048
  6. ATORVASTATIN [Concomitant]
     Indication: HYPERCHOLESTEROLAEMIA
     Dosage: 10 MG, 1DF DAILY
     Route: 048
  7. CALCIDIA [Concomitant]
     Indication: HYPOCALCAEMIA
     Dosage: 1.54 MG, AT 1DF
     Route: 048
  8. DELURSAN [Concomitant]
     Indication: CHOLELITHIASIS
     Dosage: 250 MG, UNK
     Route: 048
  9. PANTOPRAZOLE SODIUM [Concomitant]
     Dosage: 40 MG, 1DF DAILY
  10. AMLODIPINE BESYLATE [Concomitant]
     Indication: ANGINA PECTORIS
     Route: 048
  11. PROGRAF [Concomitant]
     Indication: PROPHYLAXIS AGAINST TRANSPLANT REJECTION
     Dosage: UNK UKN, UNK
  12. TACROLIMUS [Concomitant]
     Indication: PROPHYLAXIS AGAINST TRANSPLANT REJECTION
     Dosage: UNK UKN, UNK

REACTIONS (4)
  - DRUG INTOLERANCE [None]
  - RENAL FAILURE CHRONIC [None]
  - RENAL FAILURE [None]
  - RENAL INJURY [None]
